FAERS Safety Report 9387977 (Version 1)
Quarter: 2013Q3

REPORT INFORMATION
  Report Type: Spontaneous
  Country: PL (occurrence: None)
  Receive Date: 20130703
  Receipt Date: 20130703
  Transmission Date: 20140515
  Serious: Yes (Hospitalization)
  Sender: FDA-Public Use
  Company Number: AG-2013-6571

PATIENT
  Age: 72 Year
  Sex: Male

DRUGS (8)
  1. CHLORAMBUCIL [Suspect]
     Indication: CHRONIC LYMPHOCYTIC LEUKAEMIA
     Dosage: (10 MG/M2,DAYS 1-7 EVERY 28 DAYS),ORAL
     Route: 048
     Dates: start: 20101228, end: 20110530
  2. OFATUMUMAB [Suspect]
     Dosage: 300 MILLIGRAM (300 MILLIGRAM,DAY 1),INTRAVENOUS?(NOT OTHERWISE SPECIFIED)
     Route: 042
     Dates: start: 20101228, end: 20101228
  3. NADROPARIN (NADROPARIN) (EFFERVESCENT TABLET) [Concomitant]
  4. LACIDOFIL (LACTOBACILLUS FERMENTUM)(UNKNOWN) [Concomitant]
  5. POTASSIUM CHLORIDE(POTASSIUM CHLORIDE)(UNKNOWN) [Concomitant]
  6. ACETAMINOPHEN(PARACETAMOL)(UNKNOWN) [Concomitant]
  7. METAMIZOLE(METAMIZOLE SODIUM) (UNKNOWN) [Concomitant]
  8. BROMHEXINE(BROMHEXINE)(UNKNOWN) [Concomitant]

REACTIONS (1)
  - Pneumonia [None]
